FAERS Safety Report 5744958-7 (Version None)
Quarter: 2008Q2

REPORT INFORMATION
  Report Type: 
  Country: None (occurrence: None)
  Receive Date: 20080521
  Receipt Date: 20080512
  Transmission Date: 20081010
  Serious: Yes (Other)
  Sender: FDA-Public Use
  Company Number: US-JNJFOC-20080502828

PATIENT
  Sex: Female

DRUGS (11)
  1. DURAGESIC-100 [Suspect]
     Indication: FIBROMYALGIA
     Route: 062
  2. FENTANYL TRANSDERMAL SYSTEM [Suspect]
     Indication: FIBROMYALGIA
     Route: 062
  3. DILAUDID [Concomitant]
     Indication: BREAKTHROUGH PAIN
     Dosage: AS NEEDED
     Route: 048
  4. EFFEXOR [Concomitant]
     Indication: DEPRESSION
     Route: 048
  5. EFFEXOR [Concomitant]
     Indication: PAIN
     Route: 048
  6. WELLBUTRIN [Concomitant]
     Indication: DEPRESSION
     Route: 048
  7. WELLBUTRIN [Concomitant]
     Indication: PAIN
     Route: 048
  8. PROVIGIL [Concomitant]
     Indication: NARCOLEPSY
     Route: 048
  9. ZOMIG [Concomitant]
     Indication: MIGRAINE
     Route: 048
  10. PHENERGAN [Concomitant]
     Indication: NAUSEA
     Route: 048
  11. LYRICA [Concomitant]
     Indication: FIBROMYALGIA
     Route: 048

REACTIONS (4)
  - DEPRESSION [None]
  - GASTROINTESTINAL DISORDER [None]
  - THYROID DISORDER [None]
  - WRONG TECHNIQUE IN DRUG USAGE PROCESS [None]
